FAERS Safety Report 4283959-5 (Version None)
Quarter: 2004Q1

REPORT INFORMATION
  Report Type: 
  Country: None (occurrence: None)
  Receive Date: 20040202
  Receipt Date: 20040119
  Transmission Date: 20041129
  Serious: Yes (Hospitalization)
  Sender: FDA-Public Use
  Company Number: WAES 0401FRA00049

PATIENT
  Age: 60 Year
  Sex: Female
  Weight: 91 kg

DRUGS (13)
  1. BUFLOMEDIL HYDROCHLORIDE [Concomitant]
     Indication: ARTERIOPATHIC DISEASE
     Route: 048
  2. PRIMAXIN [Suspect]
     Indication: OSTEITIS
     Route: 041
     Dates: start: 20031122, end: 20031201
  3. PRIMAXIN [Suspect]
     Route: 041
     Dates: start: 20031201, end: 20040119
  4. PRIMAXIN [Suspect]
     Route: 041
     Dates: start: 20040120
  5. CLOPIDOGREL BISULFATE [Concomitant]
     Indication: THROMBOSIS PROPHYLAXIS
     Route: 048
  6. DIGOXIN [Concomitant]
     Route: 048
  7. FOLIC ACID [Concomitant]
     Route: 048
  8. GENTAMICIN [Concomitant]
     Indication: OSTEITIS
     Route: 042
     Dates: start: 20031101
  9. INSULIN [Concomitant]
     Indication: DIABETES MELLITUS
     Route: 058
  10. PRAVASTATIN SODIUM [Concomitant]
     Indication: HYPERTENSION
     Route: 048
  11. SODIUM POLYSTYRENE SULFONATE [Concomitant]
     Route: 048
  12. VALPROATE SODIUM [Concomitant]
     Indication: CONVULSION
     Route: 048
     Dates: start: 20031201
  13. ZOLPIDEM TARTRATE [Concomitant]
     Route: 048

REACTIONS (2)
  - CONVULSION [None]
  - MYOCLONUS [None]
